FAERS Safety Report 9942864 (Version 1)
Quarter: 2014Q1

REPORT INFORMATION
  Report Type: Report from Study
  Country: US (occurrence: US)
  Receive Date: 20140303
  Receipt Date: 20140303
  Transmission Date: 20141002
  Serious: No
  Sender: FDA-Public Use
  Company Number: US-ABBVIE-13P-163-1045790-00

PATIENT
  Age: 46 Year
  Sex: Male
  Weight: 113.5 kg

DRUGS (7)
  1. HUMIRA [Suspect]
     Indication: CROHN^S DISEASE
     Dates: start: 20130121, end: 20130121
  2. HUMIRA [Suspect]
     Dates: start: 20130203, end: 20130203
  3. HUMIRA [Suspect]
  4. LOVAZA [Concomitant]
     Indication: NUTRITIONAL SUPPLEMENTATION
  5. ADVICOR [Concomitant]
     Indication: HYPERLIPIDAEMIA
  6. ASPIRIN [Concomitant]
     Indication: CARDIAC DISORDER
  7. PANTOPRAZOLE [Concomitant]
     Indication: DYSPEPSIA

REACTIONS (3)
  - Fatigue [Recovered/Resolved]
  - Feeling abnormal [Recovered/Resolved]
  - Sluggishness [Recovered/Resolved]
